FAERS Safety Report 4387457-X (Version None)
Quarter: 2004Q2

REPORT INFORMATION
  Report Type: 
  Country: None (occurrence: None)
  Receive Date: 20040630
  Receipt Date: 20040310
  Transmission Date: 20050107
  Serious: No
  Sender: FDA-Public Use
  Company Number: US-BRISTOL-MYERS SQUIBB COMPANY-12530333

PATIENT
  Sex: Female

DRUGS (4)
  1. REYATAZ [Suspect]
     Indication: HIV INFECTION
  2. RITONAVIR [Suspect]
     Indication: HIV INFECTION
  3. ZIAGEN [Suspect]
     Indication: HIV INFECTION
  4. VIREAD [Suspect]
     Indication: HIV INFECTION

REACTIONS (1)
  - PREGNANCY [None]
